FAERS Safety Report 9576690 (Version 1)
Quarter: 2013Q4

REPORT INFORMATION
  Report Type: Spontaneous
  Country: US (occurrence: US)
  Receive Date: 20131001
  Receipt Date: 20131001
  Transmission Date: 20140711
  Serious: No
  Sender: FDA-Public Use
  Company Number: US-AMGEN-USASP2013004230

PATIENT
  Age: 46 Year
  Sex: Male
  Weight: 136.5 kg

DRUGS (8)
  1. ENBREL [Suspect]
     Indication: PSORIASIS
     Dosage: 50 MG, 2 TIMES/WK
     Route: 058
  2. LASIX                              /00032601/ [Concomitant]
     Dosage: 40 MG, UNK
  3. NORVASC [Concomitant]
     Dosage: 10 MG, UNK
  4. GEMFIBROZIL [Concomitant]
     Dosage: 600 MG, UNK
  5. ATENOLOL [Concomitant]
     Dosage: 25 MG, UNK
  6. MULTIVITAMINS, PLAIN [Concomitant]
     Dosage: UNK
  7. ZETIA [Concomitant]
     Dosage: 10 MG, UNK
  8. BABY ASPIRIN [Concomitant]
     Dosage: 81 MG, UNK

REACTIONS (2)
  - Urticaria [Unknown]
  - Psoriasis [Unknown]
